FAERS Safety Report 15898484 (Version 2)
Quarter: 2019Q2

REPORT INFORMATION
  Report Type: Spontaneous
  Country: FR (occurrence: FR)
  Receive Date: 20190201
  Receipt Date: 20190430
  Transmission Date: 20190711
  Serious: Yes (Death, Hospitalization, Other)
  Sender: FDA-Public Use
  Company Number: FR-ACCORD-104455

PATIENT
  Age: 79 Year
  Sex: Male
  Weight: 56 kg

DRUGS (17)
  1. EMEND [Suspect]
     Active Substance: APREPITANT
     Indication: PROPHYLAXIS OF NAUSEA AND VOMITING
     Route: 048
     Dates: start: 20181203, end: 20181219
  2. PERINDOPRIL/PERINDOPRIL ERBUMINE [Concomitant]
  3. TOUJEO [Concomitant]
     Active Substance: INSULIN GLARGINE
  4. HUMALOG [Concomitant]
     Active Substance: INSULIN LISPRO
  5. HEPARIN [Suspect]
     Active Substance: HEPARIN SODIUM
     Indication: ATRIAL FIBRILLATION
     Route: 042
     Dates: start: 20181222, end: 20181225
  6. PACLITAXEL/PACLITAXEL LIPOSOME [Suspect]
     Active Substance: PACLITAXEL
     Indication: OESOPHAGEAL SQUAMOUS CELL CARCINOMA METASTATIC
     Route: 041
     Dates: start: 20181203, end: 20181219
  7. TAMSULOSIN/TAMSULOSIN HYDROCHLORIDE [Concomitant]
  8. ESIDREX [Concomitant]
     Active Substance: HYDROCHLOROTHIAZIDE
  9. METFORMIN [Concomitant]
     Active Substance: METFORMIN HYDROCHLORIDE
  10. METHYLPREDNISOLONE. [Suspect]
     Active Substance: METHYLPREDNISOLONE
     Indication: PREMEDICATION
     Route: 041
     Dates: start: 20181203, end: 20181219
  11. SIMVASTATIN. [Concomitant]
     Active Substance: SIMVASTATIN
  12. AMLODIPINE [Concomitant]
     Active Substance: AMLODIPINE BESYLATE
  13. PARACETAMOL [Concomitant]
     Active Substance: ACETAMINOPHEN
  14. CARBOPLATIN. [Suspect]
     Active Substance: CARBOPLATIN
     Indication: OESOPHAGEAL SQUAMOUS CELL CARCINOMA METASTATIC
     Route: 041
     Dates: start: 20181203, end: 20181219
  15. ONDANSETRON [Suspect]
     Active Substance: ONDANSETRON
     Indication: PROPHYLAXIS OF NAUSEA AND VOMITING
     Route: 042
     Dates: start: 20181203, end: 20181219
  16. RANITIDINE. [Suspect]
     Active Substance: RANITIDINE
     Indication: PREMEDICATION
     Route: 041
     Dates: start: 20181203, end: 20181219
  17. DEXCHLORPHENIRAMINE/DEXCHLORPHENIRAMINE MALEATE [Suspect]
     Active Substance: DEXCHLORPHENIRAMINE MALEATE
     Indication: PROPHYLAXIS
     Route: 042
     Dates: start: 20181203, end: 20181219

REACTIONS (4)
  - Off label use [Unknown]
  - Intestinal ischaemia [Fatal]
  - Anaemia [Not Recovered/Not Resolved]
  - Thrombocytopenia [Not Recovered/Not Resolved]

NARRATIVE: CASE EVENT DATE: 20181219
